FAERS Safety Report 7032617-2 (Version None)
Quarter: 2010Q4

REPORT INFORMATION
  Report Type: 
  Country: None (occurrence: None)
  Receive Date: 20101007
  Receipt Date: 20100929
  Transmission Date: 20110411
  Serious: Yes (Disabling)
  Sender: FDA-Public Use
  Company Number: PT-ROCHE-724866

PATIENT
  Sex: Female
  Weight: 65 kg

DRUGS (3)
  1. CELLCEPT [Suspect]
     Indication: IMMUNOSUPPRESSION
     Dosage: DOSE REPORTED AS: 1G EACH 12 HOURS
     Route: 065
     Dates: start: 20060101
  2. CYCLOSPORINE [Concomitant]
     Indication: IMMUNOSUPPRESSION
     Route: 048
     Dates: start: 19960101
  3. LOSARTAN POTASSIUM AND HYDROCHLOROTHIAZIDE [Concomitant]
     Indication: HYPERTENSION
     Dosage: 15MG+12.5MG, ONCE DAILY
     Route: 048
     Dates: start: 20040101

REACTIONS (1)
  - DERMATOMYOSITIS [None]
